FAERS Safety Report 17892036 (Version 1)
Quarter: 2020Q2

REPORT INFORMATION
  Report Type: Spontaneous
  Country: US (occurrence: US)
  Receive Date: 20200612
  Receipt Date: 20200612
  Transmission Date: 20200714
  Serious: No
  Sender: FDA-Public Use
  Company Number: US-009507513-2006USA002563

PATIENT
  Age: 42 Year
  Sex: Female

DRUGS (15)
  1. FOLLISTIM AQ [Suspect]
     Active Substance: FOLLITROPIN
  2. FLUTICASONE. [Concomitant]
     Active Substance: FLUTICASONE
     Dosage: UNK
  3. PAROXETINE. [Concomitant]
     Active Substance: PAROXETINE
     Dosage: UNK
  4. MENOPUR [Concomitant]
     Active Substance: FOLLITROPIN\LUTEINIZING HORMONE
     Dosage: UNK
  5. TRAZODONE HYDROCHLORIDE. [Concomitant]
     Active Substance: TRAZODONE HYDROCHLORIDE
     Dosage: UNK
  6. LEUPROLIDE [Concomitant]
     Active Substance: LEUPROLIDE
     Dosage: UNK
  7. CETROTIDE [Concomitant]
     Active Substance: CETRORELIX ACETATE
     Dosage: UNK
  8. GANIRELIX ACETATE INJECTION [Suspect]
     Active Substance: GANIRELIX ACETATE
     Dosage: UNK
  9. ALPRAZOLAM. [Concomitant]
     Active Substance: ALPRAZOLAM
     Dosage: UNK
  10. GONADOTROPIN, CHORIONIC [Concomitant]
     Active Substance: CHORIOGONADOTROPIN ALFA
     Dosage: UNK
  11. DULOXETINE HYDROCHLORIDE. [Concomitant]
     Active Substance: DULOXETINE HYDROCHLORIDE
     Dosage: UNK
  12. ESTARYLLA [Concomitant]
     Active Substance: ETHINYL ESTRADIOL\NORGESTIMATE
     Dosage: UNK
  13. GABAPENTIN. [Concomitant]
     Active Substance: GABAPENTIN
     Dosage: UNK
  14. LEVOTHYROXINE SODIUM. [Concomitant]
     Active Substance: LEVOTHYROXINE SODIUM
     Dosage: UNK
  15. FOLLISTIM AQ [Suspect]
     Active Substance: FOLLITROPIN
     Dosage: 275 UNITS, QPM, STRENGTH: 900 INTERNATIONAL UNITS (IU)/1.08 MILLILITER (ML)
     Route: 058
     Dates: start: 20200522

REACTIONS (4)
  - Pruritus [Unknown]
  - Skin burning sensation [Unknown]
  - Swollen tongue [Unknown]
  - Drug hypersensitivity [Unknown]

NARRATIVE: CASE EVENT DATE: 20200605
